FAERS Safety Report 9439742 (Version 1)
Quarter: 2013Q3

REPORT INFORMATION
  Report Type: Spontaneous
  Country: US (occurrence: US)
  Receive Date: 20130805
  Receipt Date: 20130805
  Transmission Date: 20140515
  Serious: No
  Sender: FDA-Public Use
  Company Number: US-009507513-1307USA016262

PATIENT
  Age: 18 Year
  Sex: Female
  Weight: 67.12 kg

DRUGS (1)
  1. NEXPLANON [Suspect]
     Indication: CONTRACEPTION
     Dosage: IMPLANT FOR 3 YEARS
     Route: 059
     Dates: start: 20130723

REACTIONS (2)
  - Dizziness [Unknown]
  - Vomiting [Unknown]
